FAERS Safety Report 16925879 (Version 1)
Quarter: 2019Q4

REPORT INFORMATION
  Report Type: Spontaneous
  Country: US (occurrence: US)
  Receive Date: 20191016
  Receipt Date: 20191016
  Transmission Date: 20200122
  Serious: Yes (Other)
  Sender: FDA-Public Use
  Company Number: US-AKORN PHARMACEUTICALS-2019AKN02154

PATIENT
  Sex: Male
  Weight: 86.17 kg

DRUGS (2)
  1. CAFFEINE. [Concomitant]
     Active Substance: CAFFEINE
     Dosage: EVERY DAY
  2. MYORISAN [Suspect]
     Active Substance: ISOTRETINOIN
     Indication: ACNE CYSTIC
     Dosage: 40 MG, 2X/DAY
     Route: 048
     Dates: start: 20190624, end: 201908

REACTIONS (3)
  - Anxiety [Unknown]
  - Depression [Unknown]
  - Paranoia [Unknown]

NARRATIVE: CASE EVENT DATE: 2019
